FAERS Safety Report 5388885-6 (Version None)
Quarter: 2007Q3

REPORT INFORMATION
  Report Type: 
  Country: None (occurrence: None)
  Receive Date: 20070717
  Receipt Date: 20070706
  Transmission Date: 20080115
  Serious: Yes (Other)
  Sender: FDA-Public Use
  Company Number: AU-ABBOTT-07P-008-0369672-00

PATIENT
  Sex: Female

DRUGS (5)
  1. HYTRIN [Suspect]
     Indication: DRUG USE FOR UNKNOWN INDICATION
     Route: 048
     Dates: start: 20060926, end: 20061006
  2. EPILIM [Suspect]
     Indication: DRUG USE FOR UNKNOWN INDICATION
     Route: 048
  3. EPILIM [Suspect]
     Dosage: DOSE DECREASED
  4. CLOZAPINE [Interacting]
     Indication: SCHIZOPHRENIA
     Route: 048
     Dates: start: 19980606
  5. AMISULPRIDE [Concomitant]
     Indication: DRUG USE FOR UNKNOWN INDICATION
     Route: 048

REACTIONS (2)
  - DRUG INTERACTION [None]
  - NEUTROPENIA [None]
